FAERS Safety Report 5740002-6 (Version None)
Quarter: 2008Q2

REPORT INFORMATION
  Report Type: 
  Country: None (occurrence: None)
  Receive Date: 20080516
  Receipt Date: 20080516
  Transmission Date: 20081010
  Serious: Yes (Life-Threatening, Disabling, Other)
  Sender: FDA-Public Use
  Company Number: None

PATIENT
  Age: 89 Year
  Sex: Female

DRUGS (1)
  1. HEPARIN [Suspect]
     Dosage: 5000 UNITS SQ Q8H
     Route: 058
     Dates: start: 20080311, end: 20080314

REACTIONS (4)
  - COMPUTERISED TOMOGRAM ABNORMAL [None]
  - FALL [None]
  - HAEMATOCRIT DECREASED [None]
  - HAEMORRHAGE [None]
